FAERS Safety Report 7494941-9 (Version None)
Quarter: 2011Q2

REPORT INFORMATION
  Report Type: 
  Country: None (occurrence: None)
  Receive Date: 20110520
  Receipt Date: 20110509
  Transmission Date: 20111010
  Serious: Yes (Other)
  Sender: FDA-Public Use
  Company Number: JP-UCBSA-032510

PATIENT
  Age: 27 Year
  Sex: Female

DRUGS (2)
  1. KEPPRA [Suspect]
     Indication: EPILEPSY
     Route: 048
  2. ALEVIATIN [Concomitant]

REACTIONS (1)
  - GINGIVAL HYPERPLASIA [None]
